FAERS Safety Report 6524628-8 (Version None)
Quarter: 2010Q1

REPORT INFORMATION
  Report Type: 
  Country: None (occurrence: None)
  Receive Date: 20100104
  Receipt Date: 20091224
  Transmission Date: 20100710
  Serious: Yes (Hospitalization)
  Sender: FDA-Public Use
  Company Number: FR-JNJFOC-20091206813

PATIENT
  Sex: Female

DRUGS (7)
  1. RISPERDAL [Suspect]
     Indication: DRUG USE FOR UNKNOWN INDICATION
     Route: 048
  2. EBIXA [Suspect]
     Indication: DRUG USE FOR UNKNOWN INDICATION
     Route: 048
  3. ARICEPT [Concomitant]
     Route: 065
  4. FORLAX [Concomitant]
     Route: 065
  5. ECONAZOLE NITRATE [Concomitant]
  6. PLUREXID [Concomitant]
  7. FLUINDIONE [Concomitant]

REACTIONS (1)
  - ENCEPHALOPATHY [None]
